FAERS Safety Report 9051937 (Version 1)
Quarter: 2013Q1

REPORT INFORMATION
  Report Type: Spontaneous
  Country: US (occurrence: US)
  Receive Date: 20130207
  Receipt Date: 20130207
  Transmission Date: 20140127
  Serious: No
  Sender: FDA-Public Use
  Company Number: US-009507513-1302USA002519

PATIENT
  Sex: Female

DRUGS (1)
  1. NUVARING [Suspect]
     Dosage: 1 RING FOR 3 WEEKS
     Route: 067

REACTIONS (2)
  - Abnormal withdrawal bleeding [Unknown]
  - Incorrect drug administration duration [Unknown]
